FAERS Safety Report 10517333 (Version 1)
Quarter: 2014Q4

REPORT INFORMATION
  Report Type: Spontaneous
  Country: FR (occurrence: FR)
  Receive Date: 20141014
  Receipt Date: 20141014
  Transmission Date: 20150528
  Serious: Yes (Hospitalization)
  Sender: FDA-Public Use
  Company Number: FR-ASTRAZENECA-2014SE76003

PATIENT
  Age: 21005 Day
  Sex: Female

DRUGS (13)
  1. PREDNISONE. [Suspect]
     Active Substance: PREDNISONE
     Indication: MIXED CONNECTIVE TISSUE DISEASE
     Route: 048
     Dates: start: 20140905
  2. IMUREL [Concomitant]
     Active Substance: AZATHIOPRINE SODIUM
     Dates: start: 20140730
  3. STEROGYL [Concomitant]
     Active Substance: ERGOCALCIFEROL
  4. EUPRESSYL [Concomitant]
     Active Substance: URAPIDIL
     Indication: HYPERTENSION
     Dates: start: 20140905
  5. ALTIZIDE/SPIRONOLACTONE BIOGARAN [Concomitant]
     Indication: HYPERTENSION
     Dates: start: 20140905
  6. TOCO [Concomitant]
     Active Substance: UNSPECIFIED INGREDIENT
  7. PAROXETINE BIOGARAN [Concomitant]
     Dates: start: 20140618
  8. URSODESOXYCHOLIC ACID BIOGARAN [Concomitant]
  9. PREDNISONE. [Suspect]
     Active Substance: PREDNISONE
     Indication: MIXED CONNECTIVE TISSUE DISEASE
     Route: 048
     Dates: start: 20140625, end: 20140905
  10. ENTOCORT [Suspect]
     Active Substance: BUDESONIDE
     Indication: BILIARY CIRRHOSIS PRIMARY
     Route: 048
  11. AMLODIPINE [Concomitant]
     Active Substance: AMLODIPINE BESYLATE
     Indication: HYPERTENSION
     Dates: start: 20140730
  12. ESOMEPRAZOLE BIOGARAN [Concomitant]
     Active Substance: ESOMEPRAZOLE
     Dates: start: 20140816
  13. CACIT VITAMIN D3 [Concomitant]
     Active Substance: CALCIUM CARBONATE\CHOLECALCIFEROL
     Dates: start: 20140730

REACTIONS (3)
  - Posterior reversible encephalopathy syndrome [Not Recovered/Not Resolved]
  - Product use issue [Unknown]
  - Hypertension [Not Recovered/Not Resolved]

NARRATIVE: CASE EVENT DATE: 20140906
